FAERS Safety Report 12498340 (Version 2)
Quarter: 2016Q3

REPORT INFORMATION
  Report Type: Spontaneous
  Country: US (occurrence: US)
  Receive Date: 20160627
  Receipt Date: 20160721
  Transmission Date: 20161109
  Serious: Yes (Other)
  Sender: FDA-Public Use
  Company Number: US-BAYER-2016-116399

PATIENT
  Age: 61 Year
  Sex: Female

DRUGS (2)
  1. CLIMARA PRO [Suspect]
     Active Substance: ESTRADIOL\LEVONORGESTREL
     Indication: HORMONE REPLACEMENT THERAPY
     Dosage: UNK
     Route: 062
     Dates: start: 20160522
  2. CLIMARA PRO [Suspect]
     Active Substance: ESTRADIOL\LEVONORGESTREL
     Indication: BONE LOSS

REACTIONS (6)
  - Application site irritation [None]
  - Product use issue [None]
  - Application site erythema [None]
  - Application site pruritus [None]
  - Genital haemorrhage [None]
  - Application site reaction [None]

NARRATIVE: CASE EVENT DATE: 201605
